FAERS Safety Report 17571766 (Version 2)
Quarter: 2025Q3

REPORT INFORMATION
  Report Type: Spontaneous
  Country: EU (occurrence: EU)
  Receive Date: 20200323
  Receipt Date: 20250725
  Transmission Date: 20251020
  Serious: Yes (Life-Threatening)
  Sender: ALEXION PHARMACEUTICALS
  Company Number: 2020SE39557

PATIENT
  Age: 60 Year
  Sex: Female

DRUGS (5)
  1. DAPAGLIFLOZIN [Suspect]
     Active Substance: DAPAGLIFLOZIN
     Dosage: 5 MILLIGRAM, BID
  2. METFORMIN [Suspect]
     Active Substance: METFORMIN HYDROCHLORIDE
     Dosage: NON-AZ PRODUCT
     Route: 065
  3. INSULIN NOS [Concomitant]
     Active Substance: INSULIN NOS
  4. INSULIN ASPART [Concomitant]
     Active Substance: INSULIN ASPART
  5. INSULIN ASPART [Concomitant]
     Active Substance: INSULIN ASPART

REACTIONS (1)
  - Diabetic ketoacidosis [Recovering/Resolving]
